FAERS Safety Report 5385793-1 (Version None)
Quarter: 2007Q3

REPORT INFORMATION
  Report Type: 
  Country: None (occurrence: None)
  Receive Date: 20070712
  Receipt Date: 20070627
  Transmission Date: 20080115
  Serious: Yes (Hospitalization)
  Sender: FDA-Public Use
  Company Number: DE-GENENTECH-217786

PATIENT
  Sex: Male
  Weight: 92.971 kg

DRUGS (4)
  1. AVASTIN [Suspect]
     Indication: COLORECTAL CANCER METASTATIC
     Dosage: 450 MG, QD
     Route: 042
     Dates: start: 20050217, end: 20050818
  2. CALCIUM FOLINATE [Suspect]
     Indication: COLORECTAL CANCER METASTATIC
     Dosage: 400 MG, UNK
     Route: 042
     Dates: start: 20050217, end: 20050818
  3. FLUOROURACIL [Suspect]
     Indication: COLORECTAL CANCER METASTATIC
     Dosage: 4 G, QD
     Route: 042
     Dates: start: 20050217, end: 20050818
  4. IRINOTECAN HCL [Suspect]
     Indication: COLORECTAL CANCER METASTATIC
     Dosage: 160 MG, UNK
     Route: 042
     Dates: start: 20050217, end: 20050818

REACTIONS (2)
  - ANAL FISTULA [None]
  - RECTAL ULCER [None]
